FAERS Safety Report 4999281-5 (Version None)
Quarter: 2006Q2

REPORT INFORMATION
  Report Type: 
  Country: None (occurrence: None)
  Receive Date: 20060511
  Receipt Date: 20060502
  Transmission Date: 20061013
  Serious: Yes (Other)
  Sender: FDA-Public Use
  Company Number: PHEH2006US05822

PATIENT
  Age: 61 Year
  Sex: Female

DRUGS (5)
  1. RITALIN [Suspect]
     Indication: FATIGUE
     Dosage: UNK, BID
     Route: 048
     Dates: start: 20060101
  2. DYAZIDE [Concomitant]
     Indication: HYPERTENSION
  3. NORVASC [Concomitant]
     Indication: HYPERTENSION
  4. WELLBUTRIN [Suspect]
  5. AROMASIN [Suspect]
     Indication: BREAST CANCER
     Dosage: UNK, UNK

REACTIONS (2)
  - BREAST NEOPLASM [None]
  - DRUG INTERACTION [None]
